FAERS Safety Report 4953313-9 (Version None)
Quarter: 2006Q1

REPORT INFORMATION
  Report Type: 
  Country: None (occurrence: None)
  Receive Date: 20060131
  Receipt Date: 20050824
  Transmission Date: 20060701
  Serious: Yes (Hospitalization)
  Sender: FDA-Public Use
  Company Number: WAES 0508USA04079

PATIENT
  Sex: Male

DRUGS (1)
  1. INVANZ [Suspect]
     Dates: start: 20050801

REACTIONS (1)
  - CONVULSION [None]
